FAERS Safety Report 25813346 (Version 2)
Quarter: 2025Q3

REPORT INFORMATION
  Report Type: Spontaneous
  Country: US (occurrence: US)
  Receive Date: 20250917
  Receipt Date: 20250926
  Transmission Date: 20251021
  Serious: Yes (Hospitalization)
  Sender: ARDELYX
  Company Number: US-ARDELYX-2025ARDX006871

PATIENT
  Sex: Female

DRUGS (1)
  1. IBSRELA [Suspect]
     Active Substance: TENAPANOR HYDROCHLORIDE
     Indication: Irritable bowel syndrome
     Route: 065
     Dates: start: 2024

REACTIONS (3)
  - Spinal fusion surgery [Recovering/Resolving]
  - Post procedural infection [Recovered/Resolved]
  - Physiotherapy [Unknown]

NARRATIVE: CASE EVENT DATE: 20250101
